FAERS Safety Report 18387224 (Version 1)
Quarter: 2020Q4

REPORT INFORMATION
  Report Type: Spontaneous
  Country: US (occurrence: US)
  Receive Date: 20201014
  Receipt Date: 20201014
  Transmission Date: 20210114
  Serious: Yes (Other)
  Sender: FDA-Public Use
  Company Number: None

PATIENT
  Age: 65 Year
  Sex: Female

DRUGS (1)
  1. IBRANCE [Suspect]
     Active Substance: PALBOCICLIB
     Dosage: 1
     Route: 048
     Dates: start: 20200722

REACTIONS (5)
  - Arthralgia [None]
  - Treatment noncompliance [None]
  - Myalgia [None]
  - Therapy interrupted [None]
  - Insomnia [None]

NARRATIVE: CASE EVENT DATE: 20201013
